FAERS Safety Report 4657904-4 (Version None)
Quarter: 2005Q2

REPORT INFORMATION
  Report Type: 
  Country: None (occurrence: None)
  Receive Date: 20050510
  Receipt Date: 20050429
  Transmission Date: 20051028
  Serious: Yes (Hospitalization)
  Sender: FDA-Public Use
  Company Number: FR-NOVOPROD-243923

PATIENT
  Age: 47 Year
  Sex: Female
  Weight: 82 kg

DRUGS (8)
  1. NORDITROPIN [Suspect]
     Indication: GROWTH HORMONE DEFICIENCY
     Dosage: .1 MG, QD
     Route: 058
     Dates: start: 20010328
  2. LEVOTHYROX [Concomitant]
     Indication: THYROID DISORDER
     Dosage: 125 UG, QD
     Route: 048
     Dates: start: 19990101
  3. TAHOR [Concomitant]
     Indication: HYPERCHOLESTEROLAEMIA
     Dosage: 10 MG, QD
     Route: 048
     Dates: start: 20030101
  4. LOXAPAC [Concomitant]
     Indication: DEPRESSION
     Dosage: 3 TAB, QD
     Route: 048
  5. LAROXYL [Concomitant]
     Indication: DEPRESSION
     Dates: start: 19980101
  6. TEGRETOL [Concomitant]
     Indication: DEPRESSION
     Dosage: 1 TAB, QD
     Route: 048
     Dates: start: 20010101
  7. ZOLOFT [Concomitant]
     Indication: DEPRESSION
     Dosage: 50 MG, QD
     Route: 048
     Dates: start: 20040101
  8. CHONDROSULF [Concomitant]
     Indication: ILL-DEFINED DISORDER
     Dosage: UNK, UNK
     Dates: start: 20040101

REACTIONS (1)
  - LIPECTOMY [None]
